FAERS Safety Report 7739926-X (Version None)
Quarter: 2011Q3

REPORT INFORMATION
  Report Type: 
  Country: None (occurrence: None)
  Receive Date: 20110909
  Receipt Date: 20110907
  Transmission Date: 20111222
  Serious: Yes (Death, Hospitalization, Other)
  Sender: FDA-Public Use
  Company Number: PHHY2011US62408

PATIENT
  Sex: Male
  Weight: 70.45 kg

DRUGS (2)
  1. EXJADE [Suspect]
     Indication: HAEMOCHROMATOSIS
     Dosage: 1250 MG, DAILY
     Route: 048
     Dates: start: 20110624
  2. CHEMOTHERAPEUTICS [Suspect]

REACTIONS (5)
  - DEATH [None]
  - HAEMOPTYSIS [None]
  - PRODUCTIVE COUGH [None]
  - FATIGUE [None]
  - CONFUSIONAL STATE [None]
